FAERS Safety Report 17246900 (Version 2)
Quarter: 2020Q1

REPORT INFORMATION
  Report Type: Spontaneous
  Country: US (occurrence: US)
  Receive Date: 20200108
  Receipt Date: 20200108
  Transmission Date: 20200409
  Serious: No
  Sender: FDA-Public Use
  Company Number: US-PFIZER INC-2020004032

PATIENT
  Age: 32 Year
  Sex: Female
  Weight: 101.15 kg

DRUGS (1)
  1. VFEND [Suspect]
     Active Substance: VORICONAZOLE
     Indication: RESPIRATORY FAILURE
     Dosage: 200 MG, 2X/DAY
     Route: 048
     Dates: start: 201910, end: 20191214

REACTIONS (3)
  - Haemoptysis [Recovering/Resolving]
  - Product use in unapproved indication [Unknown]
  - Off label use [Unknown]

NARRATIVE: CASE EVENT DATE: 201910
